FAERS Safety Report 15357884 (Version 3)
Quarter: 2019Q4

REPORT INFORMATION
  Report Type: Spontaneous
  Country: IN (occurrence: IN)
  Receive Date: 20180906
  Receipt Date: 20191128
  Transmission Date: 20200122
  Serious: Yes (Other)
  Sender: FDA-Public Use
  Company Number: PHHY2018IN086184

PATIENT
  Age: 12 Year
  Sex: Male

DRUGS (7)
  1. DEXAMETHASONE. [Suspect]
     Active Substance: DEXAMETHASONE
     Indication: CENTRAL NERVOUS SYSTEM LYMPHOMA
     Route: 065
  2. METHOTREXATE. [Suspect]
     Active Substance: METHOTREXATE
     Indication: CENTRAL NERVOUS SYSTEM LYMPHOMA
     Dosage: 2.5 G/M2, CYCLIC (ON DAY 1)
     Route: 042
  3. VINCRISTINE [Suspect]
     Active Substance: VINCRISTINE
     Indication: CENTRAL NERVOUS SYSTEM LYMPHOMA
     Dosage: 1.4 MG/M2, CYCLIC (ON DAY 1)
     Route: 040
  4. LEUCOVORIN. [Suspect]
     Active Substance: LEUCOVORIN
     Indication: CENTRAL NERVOUS SYSTEM LYMPHOMA
     Dosage: 20 MG, Q6H
     Route: 042
  5. RITUXIMAB. [Suspect]
     Active Substance: RITUXIMAB
     Indication: CENTRAL NERVOUS SYSTEM LYMPHOMA
     Dosage: 375 MG/M2, CYCLIC (ON DAY 2)
     Route: 042
  6. PROCARBAZINE [Suspect]
     Active Substance: PROCARBAZINE
     Indication: CENTRAL NERVOUS SYSTEM LYMPHOMA
     Dosage: 100 MG/M2, CYCLIC (FROM DAY 1 TO 7 IN ODD NUMBERED CYCLES)
     Route: 065
  7. METHOTREXATE. [Suspect]
     Active Substance: METHOTREXATE
     Dosage: 12 MG, CYCLIC (IN WEEKS 2, 4, 6, 8 AND  10)
     Route: 037

REACTIONS (4)
  - Leukopenia [Unknown]
  - Anaemia [Unknown]
  - Neutropenia [Unknown]
  - Product use in unapproved indication [Unknown]
